FAERS Safety Report 4543793-5 (Version None)
Quarter: 2005Q1

REPORT INFORMATION
  Report Type: 
  Country: None (occurrence: None)
  Receive Date: 20050104
  Receipt Date: 20041222
  Transmission Date: 20050727
  Serious: Yes (Hospitalization)
  Sender: FDA-Public Use
  Company Number: FR-JNJFOC-20040306344

PATIENT
  Age: 47 Year
  Sex: Male
  Weight: 69 kg

DRUGS (13)
  1. REMICADE [Suspect]
     Route: 042
  2. REMICADE [Suspect]
     Dosage: INFUSION DURATION 2H35MIN
     Route: 042
  3. REMICADE [Suspect]
     Dosage: INFUSION DURATION 3H45MIN
     Route: 042
  4. REMICADE [Suspect]
     Dosage: INFUSION DURATION:LESS TAHN 3H
     Route: 042
  5. REMICADE [Suspect]
     Dosage: INFUSION DURATION 2H45MIN
     Route: 042
  6. REMICADE [Suspect]
     Dosage: 3H25MIN INFUSION DURATION
     Route: 042
  7. REMICADE [Suspect]
     Route: 042
  8. REMICADE [Suspect]
     Route: 042
  9. REMICADE [Suspect]
     Route: 042
  10. REMICADE [Suspect]
     Indication: ANKYLOSING SPONDYLITIS
     Dosage: DURATION OF INFUSION WAS 3H20MIN
     Route: 042
  11. METHOTREXATE [Concomitant]
     Indication: ANKYLOSING SPONDYLITIS
  12. EFFEXOR [Concomitant]
     Indication: DEPRESSION
     Route: 049
  13. HAVLANE [Concomitant]
     Route: 049

REACTIONS (1)
  - SUICIDAL IDEATION [None]
